FAERS Safety Report 5602994-5 (Version None)
Quarter: 2008Q1

REPORT INFORMATION
  Report Type: 
  Country: None (occurrence: None)
  Receive Date: 20080125
  Receipt Date: 20080117
  Transmission Date: 20080703
  Serious: Yes (Hospitalization, Disabling)
  Sender: FDA-Public Use
  Company Number: US-GENENTECH-246366

PATIENT
  Sex: Female

DRUGS (15)
  1. BEVACIZUMAB [Suspect]
     Indication: BREAST CANCER METASTATIC
     Dosage: 904 MG, UNK
     Dates: start: 20070711
  2. ABRAXANE [Suspect]
     Indication: BREAST CANCER METASTATIC
     Dosage: 260 MG, UNK
     Dates: start: 20070711
  3. NEUPOGEN [Suspect]
     Indication: COLON CANCER METASTATIC
     Dosage: 480 MG, UNK
     Dates: start: 20070808
  4. NYSTATIN [Concomitant]
     Indication: ANTIFUNGAL PROPHYLAXIS
     Dosage: UNK, BID
  5. FAMOTIDINE [Concomitant]
     Indication: GASTROOESOPHAGEAL REFLUX DISEASE
     Dosage: UNK, UNK
  6. DEPAKOTE [Concomitant]
     Indication: DRUG USE FOR UNKNOWN INDICATION
     Dosage: UNK, UNK
  7. LOVENOX [Concomitant]
     Indication: ANTICOAGULANT THERAPY
     Dosage: UNK, UNK
  8. MONTELUKAST SODIUM [Concomitant]
     Indication: ASTHMA
  9. ALBUTEROL SULFATE [Concomitant]
     Indication: ASTHMA
     Dosage: UNK, UNK
  10. CARVEDILOL [Concomitant]
     Indication: HYPERTENSION
     Dosage: UNK, BID
  11. CARISOPRODOL [Concomitant]
     Indication: ANTIINFLAMMATORY THERAPY
     Dosage: UNK, TID
  12. TOLTERODINE TARTRATE [Concomitant]
     Indication: POLLAKIURIA
     Dosage: UNK, UNK
  13. GLIMEPIRIDE [Concomitant]
     Indication: DIABETES MELLITUS
     Dosage: UNK, UNK
  14. INSULIN [Concomitant]
     Indication: DIABETES MELLITUS
     Dosage: UNK, UNK
  15. VALACYCLOVIR [Concomitant]
     Indication: MUCOSAL INFLAMMATION
     Dosage: 2000 MG, UNK
     Route: 048

REACTIONS (2)
  - DIARRHOEA [None]
  - MUCOSAL INFLAMMATION [None]
